FAERS Safety Report 20152397 (Version 1)
Quarter: 2021Q4

REPORT INFORMATION
  Report Type: Spontaneous
  Country: US (occurrence: None)
  Receive Date: 20211205
  Receipt Date: 20211205
  Transmission Date: 20220303
  Serious: Yes (Hospitalization)
  Sender: FDA-Public Use
  Company Number: None

PATIENT
  Sex: Female

DRUGS (16)
  1. PIQRAY [Suspect]
     Active Substance: ALPELISIB
     Indication: Breast cancer female
     Dosage: FREQUENCY : DAILY;?
     Route: 048
  2. ANASTROZOLE [Concomitant]
     Active Substance: ANASTROZOLE
  3. ATORVASTATIN [Concomitant]
     Active Substance: ATORVASTATIN
  4. BACLOFEN [Concomitant]
     Active Substance: BACLOFEN
  5. FLONASE [Concomitant]
     Active Substance: FLUTICASONE PROPIONATE
  6. GABAPENTIN [Concomitant]
     Active Substance: GABAPENTIN
  7. LEVETIRACETAM [Concomitant]
     Active Substance: LEVETIRACETAM
  8. MAGNESIUM [Concomitant]
     Active Substance: MAGNESIUM
  9. MURO [Concomitant]
  10. NAPROXEN [Concomitant]
     Active Substance: NAPROXEN
  11. PIQRAY [Concomitant]
     Active Substance: ALPELISIB
  12. SERTRALINE [Concomitant]
     Active Substance: SERTRALINE HYDROCHLORIDE
  13. SILVADENE [Concomitant]
     Active Substance: SILVER SULFADIAZINE
  14. THERATEARS [Concomitant]
     Active Substance: CARBOXYMETHYLCELLULOSE SODIUM
  15. TOPIRAMATE [Concomitant]
     Active Substance: TOPIRAMATE
  16. VITAMIN D [Concomitant]
     Active Substance: VITAMIN D NOS

REACTIONS (1)
  - Blood glucose increased [None]
